FAERS Safety Report 8489118-4 (Version None)
Quarter: 2012Q3

REPORT INFORMATION
  Report Type: 
  Country: None (occurrence: None)
  Receive Date: 20120705
  Receipt Date: 20120626
  Transmission Date: 20120928
  Serious: Yes (Other)
  Sender: FDA-Public Use
  Company Number: PHHY2012BR055971

PATIENT
  Sex: Male
  Weight: 94 kg

DRUGS (6)
  1. LOSARTAN POTASSIUM [Concomitant]
     Indication: HYPERTENSION
     Dosage: 1 DF, BID
     Route: 048
  2. AMARYL [Concomitant]
     Indication: DIABETES MELLITUS
     Dosage: 1 MG, UNK
     Route: 048
  3. LASIX [Concomitant]
     Indication: HYPERTENSION
     Dosage: 1 DF, A DAY
     Route: 048
     Dates: start: 20050101
  4. VASOPRIL [Concomitant]
     Indication: HYPERTENSION
     Dosage: 1 DF, A ADY
     Route: 048
     Dates: start: 20050101
  5. AMARYL [Concomitant]
     Dosage: 2 MG, UNK
  6. RASILEZ [Suspect]
     Indication: HYPERTENSION
     Dosage: 1 DF, DAILY
     Route: 048
     Dates: start: 20050101

REACTIONS (9)
  - NAUSEA [None]
  - ASTHENIA [None]
  - DIZZINESS [None]
  - AORTIC DILATATION [None]
  - RETCHING [None]
  - BLOOD GLUCOSE INCREASED [None]
  - VOMITING [None]
  - CHILLS [None]
  - HYPERHIDROSIS [None]
